FAERS Safety Report 7387804-0 (Version None)
Quarter: 2011Q1

REPORT INFORMATION
  Report Type: 
  Country: None (occurrence: None)
  Receive Date: 20110331
  Receipt Date: 20110325
  Transmission Date: 20110831
  Serious: Yes (Hospitalization, Other)
  Sender: FDA-Public Use
  Company Number: US-GILEAD-2011-0037390

PATIENT
  Age: 87 Year
  Sex: Female

DRUGS (1)
  1. LETAIRIS [Suspect]
     Indication: PRODUCT USED FOR UNKNOWN INDICATION
     Route: 048
     Dates: start: 20110225

REACTIONS (11)
  - RENAL DISORDER [None]
  - COUGH [None]
  - UNEVALUABLE EVENT [None]
  - HAEMOPTYSIS [None]
  - OEDEMA [None]
  - CONDITION AGGRAVATED [None]
  - ASCITES [None]
  - FATIGUE [None]
  - NAUSEA [None]
  - NOCTURNAL DYSPNOEA [None]
  - ABASIA [None]
